FAERS Safety Report 12987595 (Version 1)
Quarter: 2016Q4

REPORT INFORMATION
  Report Type: Spontaneous
  Country: US (occurrence: US)
  Receive Date: 20161130
  Receipt Date: 20161130
  Transmission Date: 20170207
  Serious: Yes (Hospitalization)
  Sender: FDA-Public Use
  Company Number: None

PATIENT
  Age: 1 Year
  Sex: Female

DRUGS (12)
  1. FLOVENT [Concomitant]
     Active Substance: FLUTICASONE PROPIONATE
  2. ALBUTEROL. [Concomitant]
     Active Substance: ALBUTEROL
  3. IBUPROFEN. [Concomitant]
     Active Substance: IBUPROFEN
  4. HYDROCORTISONE. [Concomitant]
     Active Substance: HYDROCORTISONE
  5. OMEPRAZOLE. [Concomitant]
     Active Substance: OMEPRAZOLE
  6. NITROFURANTOIN. [Concomitant]
     Active Substance: NITROFURANTOIN
  7. BETHKIS [Suspect]
     Active Substance: TOBRAMYCIN
     Dosage: 300MG BID NEB
     Dates: start: 20160930
  8. AUGMENTIN [Concomitant]
     Active Substance: AMOXICILLIN\CLAVULANATE POTASSIUM
  9. VORICONAZOLE. [Concomitant]
     Active Substance: VORICONAZOLE
  10. POLYVI [Concomitant]
  11. CULTURELLE [Concomitant]
     Active Substance: LACTOBACILLUS RHAMNOSUS
  12. BACTRIM [Concomitant]
     Active Substance: SULFAMETHOXAZOLE\TRIMETHOPRIM

REACTIONS (1)
  - Hospitalisation [None]
